FAERS Safety Report 8834226 (Version 3)
Quarter: 2013Q1

REPORT INFORMATION
  Report Type: Spontaneous
  Country: US (occurrence: US)
  Receive Date: 20121010
  Receipt Date: 20130129
  Transmission Date: 20140127
  Serious: No
  Sender: FDA-Public Use
  Company Number: US-009507513-1209USA007074

PATIENT
  Sex: Female

DRUGS (5)
  1. PEGINTRON [Suspect]
     Indication: HEPATITIS C
     Dosage: UNK
     Dates: start: 20120625
  2. RIBAVIRIN [Suspect]
     Indication: HEPATITIS C
     Dosage: 6 DF, QD
     Dates: start: 20120625, end: 2012
  3. RIBAVIRIN [Suspect]
     Dosage: 3 DF, QD
     Dates: start: 2012
  4. RIBAVIRIN [Suspect]
     Dosage: UNK
  5. VICTRELIS [Suspect]
     Indication: HEPATITIS C
     Dosage: UNK
     Dates: start: 20121025

REACTIONS (5)
  - Anaemia [Unknown]
  - Anaemia [Unknown]
  - Anaemia [Unknown]
  - Haemoglobin decreased [Unknown]
  - Leukopenia [Unknown]
